FAERS Safety Report 14593826 (Version 1)
Quarter: 2018Q1

REPORT INFORMATION
  Report Type: Spontaneous
  Country: US (occurrence: US)
  Receive Date: 20180302
  Receipt Date: 20180302
  Transmission Date: 20180509
  Serious: Yes (Other)
  Sender: FDA-Public Use
  Company Number: US-AKRON, INC.-2042878

PATIENT
  Sex: Female

DRUGS (1)
  1. THERATEARS LUBRICANT [Suspect]
     Active Substance: CARBOXYMETHYLCELLULOSE SODIUM
     Route: 047

REACTIONS (3)
  - Blister [None]
  - Eye pain [Recovering/Resolving]
  - Eyelid margin crusting [Recovering/Resolving]
